FAERS Safety Report 15089374 (Version 2)
Quarter: 2018Q3

REPORT INFORMATION
  Report Type: Spontaneous
  Country: CZ (occurrence: CZ)
  Receive Date: 20180629
  Receipt Date: 20180711
  Transmission Date: 20181010
  Serious: Yes (Other)
  Sender: FDA-Public Use
  Company Number: CZ-ROCHE-2147443

PATIENT
  Age: 67 Year
  Sex: Male

DRUGS (1)
  1. ERIVEDGE [Suspect]
     Active Substance: VISMODEGIB
     Indication: BASAL CELL CARCINOMA
     Dosage: DATE OF LAST DOSE 11/JUN/2018
     Route: 048
     Dates: start: 20180411

REACTIONS (1)
  - Primary hypothyroidism [Not Recovered/Not Resolved]

NARRATIVE: CASE EVENT DATE: 201805
